FAERS Safety Report 5753036-2 (Version None)
Quarter: 2008Q2

REPORT INFORMATION
  Report Type: 
  Country: None (occurrence: None)
  Receive Date: 20080527
  Receipt Date: 20080513
  Transmission Date: 20081010
  Serious: Yes (Death)
  Sender: FDA-Public Use
  Company Number: 100#08#2008-02712

PATIENT
  Age: 49 Year
  Sex: Male

DRUGS (2)
  1. TRAMADOL HCL [Suspect]
     Indication: DRUG USE FOR UNKNOWN INDICATION
  2. FLUNITRAZEPAM (FLUNITRAZEPAM) [Concomitant]

REACTIONS (3)
  - LABORATORY TEST ABNORMAL [None]
  - OVERDOSE [None]
  - PULMONARY OEDEMA [None]
